FAERS Safety Report 5378140-2 (Version None)
Quarter: 2007Q3

REPORT INFORMATION
  Report Type: 
  Country: None (occurrence: None)
  Receive Date: 20070705
  Receipt Date: 20070626
  Transmission Date: 20080115
  Serious: Yes (Disabling, Other)
  Sender: FDA-Public Use
  Company Number: PHFR2006GB03235

PATIENT
  Age: 65 Year
  Sex: Female
  Weight: 80 kg

DRUGS (10)
  1. ZOMETA [Suspect]
     Indication: METASTASES TO BONE
     Dosage: 3MG
     Route: 042
     Dates: start: 20050613, end: 20050613
  2. ACETAMINOPHEN [Concomitant]
     Indication: PAIN
     Dosage: 1 G, QID
     Route: 048
  3. CO-AMILOZIDE [Concomitant]
     Indication: HYPERTENSION
     Dosage: 2.5 MG, QD
     Route: 048
  4. QUININE SULFATE [Concomitant]
     Indication: MUSCLE SPASMS
     Dosage: 200MG/DAY
     Route: 048
  5. ANASTROZOLE [Concomitant]
     Indication: BREAST CANCER
     Dosage: 1MG/DAY
     Route: 048
     Dates: start: 19990101
  6. GABAPENTIN [Concomitant]
     Indication: NEURALGIA
     Dosage: 300 MG, TID
     Route: 048
     Dates: end: 20060101
  7. FUROSEMIDE [Concomitant]
     Dosage: 80MG/DAY
     Route: 048
  8. INSULIN NOVO [Concomitant]
     Indication: DIABETES MELLITUS
     Dosage: VARIABLE
     Route: 058
     Dates: start: 20050101
  9. METHADONE HCL [Concomitant]
     Indication: PAIN
     Dosage: 5 MG, BID
     Route: 048
     Dates: start: 20050610, end: 20060101
  10. ANALGESICS [Concomitant]
     Route: 065

REACTIONS (5)
  - BLOOD CREATININE INCREASED [None]
  - BLOOD UREA INCREASED [None]
  - GOUT [None]
  - INFLUENZA LIKE ILLNESS [None]
  - PAIN IN EXTREMITY [None]
